FAERS Safety Report 5121908-8 (Version None)
Quarter: 2006Q4

REPORT INFORMATION
  Report Type: 
  Country: None (occurrence: None)
  Receive Date: 20061006
  Receipt Date: 20060913
  Transmission Date: 20070319
  Serious: No
  Sender: FDA-Public Use
  Company Number: JP-BRISTOL-MYERS SQUIBB COMPANY-13508718

PATIENT
  Age: 57 Year
  Sex: Male

DRUGS (3)
  1. TAXOL [Suspect]
     Indication: LUNG NEOPLASM MALIGNANT
     Route: 042
     Dates: start: 20041101
  2. IRINOTECAN HCL [Concomitant]
  3. GEFITINIB [Concomitant]

REACTIONS (1)
  - NEPHROTIC SYNDROME [None]
